FAERS Safety Report 4294693-X (Version None)
Quarter: 2004Q1

REPORT INFORMATION
  Report Type: 
  Country: None (occurrence: None)
  Receive Date: 20040213
  Receipt Date: 20020205
  Transmission Date: 20041129
  Serious: Yes (Hospitalization)
  Sender: FDA-Public Use
  Company Number: GB-ROCHE-306487

PATIENT
  Age: 59 Year
  Sex: Female
  Weight: 90.5 kg

DRUGS (10)
  1. DACLIZUMAB [Suspect]
     Route: 042
     Dates: start: 20020122, end: 20020122
  2. DACLIZUMAB [Suspect]
     Dosage: FOR A TOTAL OF 4 DOSES.
     Route: 042
     Dates: start: 20020205, end: 20020305
  3. MYCOPHENOLATE MOFETIL [Suspect]
     Route: 048
     Dates: start: 20020122, end: 20020405
  4. MYCOPHENOLATE MOFETIL [Suspect]
     Route: 048
     Dates: start: 20020406, end: 20020418
  5. PREDNISONE [Concomitant]
     Dates: start: 20020123
  6. NEORAL [Concomitant]
     Dates: start: 20020122, end: 20020502
  7. NIFEDIPINE [Concomitant]
     Dates: start: 20020122
  8. ASPIRIN [Concomitant]
     Dates: start: 20020122
  9. COTRIM [Concomitant]
     Dates: start: 20020123
  10. ALLOPURINOL [Concomitant]
     Dates: start: 20020122

REACTIONS (26)
  - ABDOMINAL TENDERNESS [None]
  - BACTERIA WOUND IDENTIFIED [None]
  - BLOOD PHOSPHORUS DECREASED [None]
  - CANDIDIASIS [None]
  - CATHETER RELATED COMPLICATION [None]
  - COLLAPSE OF LUNG [None]
  - DEHYDRATION [None]
  - DIARRHOEA [None]
  - FLUID OVERLOAD [None]
  - GLYCOPEPTIDE ANTIBIOTIC RESISTANT ENTEROCOCCAL INFECTION [None]
  - HAEMODIALYSIS [None]
  - IMPAIRED HEALING [None]
  - OBSTRUCTIVE UROPATHY [None]
  - PERINEPHRIC EFFUSION [None]
  - PLEURAL EFFUSION [None]
  - POSTOPERATIVE INFECTION [None]
  - POSTOPERATIVE WOUND COMPLICATION [None]
  - PULMONARY OEDEMA [None]
  - RENAL FAILURE ACUTE [None]
  - SEPSIS [None]
  - TENDERNESS [None]
  - URINARY TRACT INFECTION [None]
  - URINARY TRACT INFECTION ENTEROCOCCAL [None]
  - WEIGHT DECREASED [None]
  - WOUND DECOMPOSITION [None]
  - WOUND SECRETION [None]
